FAERS Safety Report 19701103 (Version 1)
Quarter: 2021Q3

REPORT INFORMATION
  Report Type: Spontaneous
  Country: US (occurrence: US)
  Receive Date: 20210814
  Receipt Date: 20210814
  Transmission Date: 20211014
  Serious: Yes (Hospitalization, Other)
  Sender: FDA-Public Use
  Company Number: US-MSNLABS-2021MSNLIT00314

PATIENT
  Age: 64 Year
  Sex: Female

DRUGS (1)
  1. DOFETILIDE CAPSULES 500 MCG [Suspect]
     Active Substance: DOFETILIDE
     Indication: ATRIAL FIBRILLATION
     Route: 065

REACTIONS (1)
  - Drug ineffective [Unknown]
